FAERS Safety Report 5599731-X (Version None)
Quarter: 2008Q1

REPORT INFORMATION
  Report Type: 
  Country: None (occurrence: None)
  Receive Date: 20080123
  Receipt Date: 20080116
  Transmission Date: 20080703
  Serious: Yes (Hospitalization)
  Sender: FDA-Public Use
  Company Number: US-BRISTOL-MYERS SQUIBB COMPANY-14043186

PATIENT
  Age: 30 Year
  Sex: Female
  Weight: 42 kg

DRUGS (2)
  1. CETUXIMAB [Suspect]
     Indication: ADENOCARCINOMA OF THE CERVIX
     Dosage: TOTAL DOSE ADMINISTERED FIRST COURSE: 1296 MG. TOTAL NUMBER OF COURSES ADMINISTERED TO DATE: 2.
     Route: 042
     Dates: start: 20071221
  2. CISPLATIN [Suspect]
     Indication: ADENOCARCINOMA OF THE CERVIX
     Dosage: TOTAL DOSE ADMINISTERED FIRST COURSE: 86.4 MG. TOTAL NUMBER OF COURSES TO DATE: 2.
     Dates: start: 20071221

REACTIONS (4)
  - CONSTIPATION [None]
  - NAUSEA [None]
  - PAIN IN EXTREMITY [None]
  - VOMITING [None]
